FAERS Safety Report 5119553-3 (Version None)
Quarter: 2006Q3

REPORT INFORMATION
  Report Type: 
  Country: None (occurrence: None)
  Receive Date: 20060928
  Receipt Date: 20060915
  Transmission Date: 20061208
  Serious: Yes (Death)
  Sender: FDA-Public Use
  Company Number: 2005128887

PATIENT
  Age: 75 Year
  Sex: Female

DRUGS (16)
  1. NEURONTIN [Suspect]
     Indication: ANXIETY
     Dosage: 1200 MG (300 MG, 4 IN 1 D), ORAL
     Route: 048
     Dates: start: 20010705
  2. NEURONTIN [Suspect]
     Indication: DEPRESSION
     Dosage: 1200 MG (300 MG, 4 IN 1 D), ORAL
     Route: 048
     Dates: start: 20010705
  3. NEURONTIN [Suspect]
     Indication: NERVOUSNESS
     Dosage: 1200 MG (300 MG, 4 IN 1 D), ORAL
     Route: 048
     Dates: start: 20010705
  4. NEURONTIN [Suspect]
     Indication: PAIN
     Dosage: 1200 MG (300 MG, 4 IN 1 D), ORAL
     Route: 048
     Dates: start: 20010705
  5. PROPACET 100 [Concomitant]
  6. LIDOCAINE [Concomitant]
  7. ESTRADIOL INJ [Concomitant]
  8. DYAZIDE [Concomitant]
  9. SYNTHROID [Concomitant]
  10. LABETALOL HCL [Concomitant]
  11. AMITRIPTYLINE HCL [Concomitant]
  12. ALPRAZOLAM [Concomitant]
  13. FUROSEMIDE [Concomitant]
  14. CIPROFLOXACIN [Concomitant]
  15. COMBIVENT [Concomitant]
  16. REMERON [Concomitant]

REACTIONS (6)
  - COMPLETED SUICIDE [None]
  - DRUG INEFFECTIVE [None]
  - GUN SHOT WOUND [None]
  - HEAD INJURY [None]
  - SUBARACHNOID HAEMORRHAGE [None]
  - TRAUMATIC BRAIN INJURY [None]
